FAERS Safety Report 5441108-1 (Version None)
Quarter: 2007Q3

REPORT INFORMATION
  Report Type: 
  Country: None (occurrence: None)
  Receive Date: 20070831
  Receipt Date: 20070824
  Transmission Date: 20080115
  Serious: Yes (Death, Hospitalization)
  Sender: FDA-Public Use
  Company Number: GB-PFIZER INC-2007060034

PATIENT
  Age: 40 Year
  Sex: Female

DRUGS (11)
  1. DOXORUBICIN HYDROCHLORIDE [Suspect]
     Indication: HODGKIN'S DISEASE
  2. CYCLOPHOSPHAMIDE [Suspect]
     Indication: HODGKIN'S DISEASE
  3. CYTARABINE [Suspect]
     Indication: HODGKIN'S DISEASE
  4. METHOTREXATE [Suspect]
     Indication: HODGKIN'S DISEASE
  5. BLEOMYCIN [Suspect]
     Indication: HODGKIN'S DISEASE
  6. CISPLATIN [Suspect]
     Indication: HODGKIN'S DISEASE
  7. DEXAMETHASONE 0.5MG TAB [Suspect]
  8. PREDNISONE [Suspect]
  9. PROCARBAZINE HYDROCHLORIDE [Suspect]
  10. VINCRISTINE [Suspect]
  11. ETOPOSIDE [Concomitant]

REACTIONS (9)
  - COORDINATION ABNORMAL [None]
  - FEBRILE NEUTROPENIA [None]
  - GAIT DISTURBANCE [None]
  - HEADACHE [None]
  - MALIGNANT NEOPLASM PROGRESSION [None]
  - METASTASIS [None]
  - PARAESTHESIA [None]
  - PARAPARESIS [None]
  - SPINAL ANAESTHESIA [None]
